FAERS Safety Report 10456695 (Version 2)
Quarter: 2014Q3

REPORT INFORMATION
  Report Type: Spontaneous
  Country: IT (occurrence: None)
  Receive Date: 20140912
  Receipt Date: 20140930
  Transmission Date: 20150326
  Serious: Yes (Hospitalization)
  Sender: FDA-Public Use
  Company Number: 2518976

PATIENT
  Age: 78 Year
  Sex: Female

DRUGS (2)
  1. CARBOPLATIN. [Suspect]
     Active Substance: CARBOPLATIN
     Indication: OVARIAN CANCER STAGE IV
     Route: 042
     Dates: start: 20140808, end: 20140819
  2. PACLITAXEL. [Concomitant]
     Active Substance: PACLITAXEL

REACTIONS (6)
  - Erythema [None]
  - Atelectasis [None]
  - Abdominal pain upper [None]
  - Extrasystoles [None]
  - Hyperhidrosis [None]
  - Blood pressure increased [None]

NARRATIVE: CASE EVENT DATE: 20140819
